FAERS Safety Report 9368127 (Version 1)
Quarter: 2013Q2

REPORT INFORMATION
  Report Type: Spontaneous
  Country: US (occurrence: US)
  Receive Date: 20130625
  Receipt Date: 20130625
  Transmission Date: 20140414
  Serious: No
  Sender: FDA-Public Use
  Company Number: US-ASTELLAS-2012US012318

PATIENT
  Sex: Male
  Weight: 132 kg

DRUGS (12)
  1. VESICARE [Suspect]
     Indication: HYPERTONIC BLADDER
     Dosage: 5 MG, UID/QD
     Route: 048
     Dates: start: 2011
  2. VESICARE [Suspect]
     Dosage: 15 MG, UID/QD
     Route: 048
     Dates: start: 2012
  3. VESICARE [Suspect]
     Dosage: 15 MG, UNKNOWN/D
     Route: 048
     Dates: start: 2012
  4. FINASTERIDE [Concomitant]
     Indication: PRODUCT USED FOR UNKNOWN INDICATION
     Dosage: 5 MG, QHS
     Route: 048
  5. IBUPROFEN [Concomitant]
     Indication: PAIN
     Dosage: 800 MG, PRN
     Route: 048
  6. FLEXERIL                           /00428402/ [Concomitant]
     Indication: MUSCLE SPASMS
     Dosage: 10 MG, PRN
     Route: 048
  7. FLEXERIL                           /00428402/ [Concomitant]
     Indication: PAIN
  8. SIMVASTATIN [Concomitant]
     Indication: BLOOD CHOLESTEROL
     Dosage: 10 MG, UID/QD
     Route: 048
  9. ALLEGRA [Concomitant]
     Indication: PRODUCT USED FOR UNKNOWN INDICATION
     Dosage: 180 MG, UID/QD
     Route: 048
  10. BAYER ASPIRIN [Concomitant]
     Indication: ANTICOAGULANT THERAPY
     Dosage: 81 MG, UID/QD
     Route: 048
  11. CALCET                             /00637401/ [Concomitant]
     Indication: OSTEOPOROSIS
     Dosage: 150 MG, BID
     Route: 048
  12. DOXAZOSIN [Concomitant]
     Indication: HYPERTONIC BLADDER
     Dosage: 8 MG, UID/QD
     Route: 048

REACTIONS (3)
  - Overdose [Unknown]
  - Drug ineffective [Recovering/Resolving]
  - Dry mouth [Unknown]
